FAERS Safety Report 20500773 (Version 6)
Quarter: 2022Q3

REPORT INFORMATION
  Report Type: Report from Study
  Country: IN (occurrence: IN)
  Receive Date: 20220222
  Receipt Date: 20220822
  Transmission Date: 20221026
  Serious: Yes (Other)
  Sender: FDA-Public Use
  Company Number: IN-TAKEDA-2021TUS063558

PATIENT
  Sex: Female

DRUGS (1)
  1. VEDOLIZUMAB [Suspect]
     Active Substance: VEDOLIZUMAB
     Indication: Crohn^s disease
     Dosage: 300 MILLIGRAM
     Route: 042
     Dates: start: 20210825

REACTIONS (14)
  - Haematochezia [Unknown]
  - Crohn^s disease [Unknown]
  - Fistula discharge [Unknown]
  - Mucous stools [Unknown]
  - COVID-19 [Not Recovered/Not Resolved]
  - Frequent bowel movements [Unknown]
  - Weight increased [Unknown]
  - Buttock injury [Unknown]
  - Female genital tract fistula [Unknown]
  - Infection [Unknown]
  - Depression [Unknown]
  - Constipation [Unknown]
  - Pyrexia [Unknown]
  - Pain in extremity [Unknown]
